FAERS Safety Report 18594559 (Version 1)
Quarter: 2020Q4

REPORT INFORMATION
  Report Type: Spontaneous
  Country: US (occurrence: US)
  Receive Date: 20201208
  Receipt Date: 20201208
  Transmission Date: 20210114
  Serious: Yes (Hospitalization)
  Sender: FDA-Public Use
  Company Number: None

PATIENT
  Age: 64 Year
  Sex: Female
  Weight: 97.65 kg

DRUGS (14)
  1. D [Concomitant]
  2. PHENERGAN [Concomitant]
     Active Substance: PROMETHAZINE HYDROCHLORIDE
  3. MAGNESIUM [Concomitant]
     Active Substance: MAGNESIUM
  4. TRESIBA [Concomitant]
     Active Substance: INSULIN DEGLUDEC
  5. PSYLLIUM [Concomitant]
     Active Substance: PLANTAGO SEED
  6. PROTANDIIM [Concomitant]
  7. GABATENTIN [Concomitant]
  8. ZINC. [Concomitant]
     Active Substance: ZINC
  9. LOSARTAN. [Concomitant]
     Active Substance: LOSARTAN
  10. MULTIVITAMIN [Concomitant]
     Active Substance: VITAMINS
  11. VITAMIN C [Concomitant]
     Active Substance: ASCORBIC ACID
  12. PROBIOTIC [Concomitant]
     Active Substance: PROBIOTICS NOS
  13. ASPIRIN. [Concomitant]
     Active Substance: ASPIRIN
  14. NITROFURANTOIN. [Suspect]
     Active Substance: NITROFURANTOIN
     Indication: URINARY TRACT INFECTION
     Dosage: ?          QUANTITY:1 CAPSULE(S);?
     Route: 048

REACTIONS (9)
  - Diarrhoea [None]
  - Weight bearing difficulty [None]
  - Pneumonia [None]
  - Vomiting [None]
  - Kidney infection [None]
  - Sepsis [None]
  - Bacterial infection [None]
  - Decreased activity [None]
  - Paraesthesia [None]

NARRATIVE: CASE EVENT DATE: 20201029
